FAERS Safety Report 9733319 (Version 1)
Quarter: 2013Q4

REPORT INFORMATION
  Report Type: Spontaneous
  Country: US (occurrence: US)
  Receive Date: 20131204
  Receipt Date: 20131204
  Transmission Date: 20140711
  Serious: No
  Sender: FDA-Public Use
  Company Number: US-ENDO PHARMACEUTICALS INC.-APIR20120003

PATIENT
  Age: 59 Year
  Sex: Female

DRUGS (2)
  1. ALPRAZOLAM IR TABLETS 1MG [Suspect]
     Indication: HEART RATE INCREASED
     Route: 048
     Dates: start: 20120221
  2. ALPRAZOLAM IR TABLETS 1MG [Suspect]
     Indication: INITIAL INSOMNIA

REACTIONS (2)
  - Drug ineffective [Not Recovered/Not Resolved]
  - Anxiety [None]
